FAERS Safety Report 7717818-X (Version None)
Quarter: 2011Q3

REPORT INFORMATION
  Report Type: 
  Country: None (occurrence: None)
  Receive Date: 20110830
  Receipt Date: 20110818
  Transmission Date: 20111222
  Serious: Yes (Hospitalization)
  Sender: FDA-Public Use
  Company Number: RO-SANOFI-AVENTIS-2011SA044461

PATIENT
  Age: 72 Year
  Sex: Female
  Weight: 75 kg

DRUGS (15)
  1. DIGOXIN [Concomitant]
  2. PERINDOPRIL [Concomitant]
  3. ALPRAZOLAM [Concomitant]
  4. DALTEPARIN SODIUM [Concomitant]
  5. CARVEDILOL [Concomitant]
  6. SINTROM [Concomitant]
  7. SPIRONOLACTONE [Concomitant]
  8. SERMION [Concomitant]
  9. CARVEDILOL [Concomitant]
     Dates: start: 20110324
  10. DIURETICS [Concomitant]
  11. DIURETICS [Concomitant]
     Dates: start: 20110328
  12. IRBESARTAN [Concomitant]
  13. DRONEDARONE HCL [Suspect]
     Indication: ATRIAL FIBRILLATION
     Route: 048
     Dates: start: 20110228, end: 20110323
  14. DEXTROSE [Concomitant]
  15. RAMIPRIL [Concomitant]
     Route: 048

REACTIONS (1)
  - CARDIAC FAILURE [None]
